FAERS Safety Report 7120819-6 (Version None)
Quarter: 2010Q4

REPORT INFORMATION
  Report Type: 
  Country: None (occurrence: None)
  Receive Date: 20101118
  Receipt Date: 20101118
  Transmission Date: 20110411
  Serious: No
  Sender: FDA-Public Use
  Company Number: None

PATIENT
  Sex: Female

DRUGS (6)
  1. SYMBICORT [Suspect]
     Dosage: INHALE TWO PUFFS BY MOUTH TWICE DAILY
     Route: 055
     Dates: start: 20090422
  2. LEVOTHYROXINE SODIUM [Concomitant]
  3. METFORMIN [Concomitant]
  4. CRESTOR [Concomitant]
  5. ALBUTEROL [Concomitant]
  6. CHLORTHALIDONE [Concomitant]

REACTIONS (1)
  - DRUG INEFFECTIVE [None]
